FAERS Safety Report 6201683-6 (Version None)
Quarter: 2009Q2

REPORT INFORMATION
  Report Type: 
  Country: None (occurrence: None)
  Receive Date: 20090526
  Receipt Date: 20090519
  Transmission Date: 20091009
  Serious: Yes (Other)
  Sender: FDA-Public Use
  Company Number: US-BAYER-200914010NA

PATIENT
  Age: 28 Year
  Sex: Female

DRUGS (2)
  1. MIRENA [Suspect]
     Indication: DRUG USE FOR UNKNOWN INDICATION
     Dosage: CONTINUOUS
     Route: 015
     Dates: start: 20081105
  2. VITAMIN TAB [Concomitant]

REACTIONS (4)
  - EAR NEOPLASM [None]
  - HEADACHE [None]
  - OPTIC NEURITIS [None]
  - VISUAL IMPAIRMENT [None]
